FAERS Safety Report 22244569 (Version 2)
Quarter: 2023Q2

REPORT INFORMATION
  Report Type: Spontaneous
  Country: PT (occurrence: PT)
  Receive Date: 20230424
  Receipt Date: 20230505
  Transmission Date: 20230722
  Serious: Yes (Hospitalization, Other)
  Sender: FDA-Public Use
  Company Number: PT-Hikma Pharmaceuticals-PT-H14001-23-01012

PATIENT
  Age: 57 Year
  Sex: Male

DRUGS (8)
  1. GEMCITABINE [Suspect]
     Active Substance: GEMCITABINE
     Indication: Thyroid cancer metastatic
     Dosage: 1000 MILLIGRAM/SQ. METER
     Route: 065
     Dates: start: 201607, end: 201701
  2. GEMCITABINE [Suspect]
     Active Substance: GEMCITABINE
     Dosage: 27 CYCLES WITH EACH CYCLE BEING ADMINISTERED EVERY 2 TO 3 WEEKS
     Route: 065
     Dates: start: 201806, end: 202006
  3. OXALIPLATIN [Suspect]
     Active Substance: OXALIPLATIN
     Indication: Thyroid cancer metastatic
     Dosage: 100 MILLIGRAM/SQ. METER
     Route: 065
     Dates: start: 201607
  4. OXALIPLATIN [Suspect]
     Active Substance: OXALIPLATIN
     Dosage: REDUCED BY 20%
     Route: 065
     Dates: end: 201701
  5. OXALIPLATIN [Suspect]
     Active Substance: OXALIPLATIN
     Dosage: 27 CYCLES WITH EACH CYCLE BEING ADMINISTERED EVERY 2 TO 3 WEEKS
     Route: 065
     Dates: start: 201806
  6. OXYGEN [Concomitant]
     Active Substance: OXYGEN
     Indication: Dyspnoea
     Dosage: UNKNOWN
     Route: 065
  7. SUNITINIB [Concomitant]
     Active Substance: SUNITINIB
     Indication: Bone lesion
     Dosage: 37.5 MILLIGRAM, ONCE A DAY
     Route: 065
  8. SUNITINIB [Concomitant]
     Active Substance: SUNITINIB
     Dosage: UNK
     Route: 065
     Dates: start: 201510

REACTIONS (6)
  - Pneumonia [Unknown]
  - Peripheral sensory neuropathy [Unknown]
  - Superior vena cava syndrome [Unknown]
  - Haematotoxicity [Unknown]
  - Thyroglobulin increased [Recovered/Resolved]
  - Off label use [Unknown]

NARRATIVE: CASE EVENT DATE: 20160101
